FAERS Safety Report 25572082 (Version 5)
Quarter: 2025Q3

REPORT INFORMATION
  Report Type: Spontaneous
  Country: US (occurrence: US)
  Receive Date: 20250717
  Receipt Date: 20250910
  Transmission Date: 20251021
  Serious: Yes (Other)
  Sender: BRISTOL-MYERS SQUIBB COMPANY
  Company Number: US-BRISTOL-MYERS SQUIBB COMPANY-2025-100316

PATIENT
  Age: 64 Year
  Sex: Male

DRUGS (6)
  1. POMALYST [Suspect]
     Active Substance: POMALIDOMIDE
     Indication: Plasma cell myeloma
  2. POMALYST [Suspect]
     Active Substance: POMALIDOMIDE
     Indication: Plasma cell myeloma in remission
     Dates: start: 202411
  3. POMALYST [Suspect]
     Active Substance: POMALIDOMIDE
     Dosage: 1 TIME A DAY FOR 21 DAYS ON THEN 7 DAYS OFF
     Dates: start: 202411
  4. POMALYST [Suspect]
     Active Substance: POMALIDOMIDE
  5. NINLARO [Concomitant]
     Active Substance: IXAZOMIB CITRATE
     Indication: Plasma cell myeloma in remission
     Dosage: TAKE 1 CAPSULE BY MOUTH ON DAYS 1, 8, 15 OF A 28 DAY CYCLE
  6. NINLARO [Concomitant]
     Active Substance: IXAZOMIB CITRATE
     Indication: Plasma cell myeloma

REACTIONS (10)
  - Neuropathy peripheral [Unknown]
  - Lung disorder [Unknown]
  - Sarcoidosis [Recovering/Resolving]
  - Peripheral swelling [Recovering/Resolving]
  - Atrial fibrillation [Recovering/Resolving]
  - Fatigue [Not Recovered/Not Resolved]
  - Arthralgia [Not Recovered/Not Resolved]
  - Skin discolouration [Not Recovered/Not Resolved]
  - Swelling [Not Recovered/Not Resolved]
  - Oedema [Not Recovered/Not Resolved]
